FAERS Safety Report 12935938 (Version 1)
Quarter: 2016Q4

REPORT INFORMATION
  Report Type: Spontaneous
  Country: US (occurrence: US)
  Receive Date: 20161114
  Receipt Date: 20161114
  Transmission Date: 20170207
  Serious: Yes (Other)
  Sender: FDA-Public Use
  Company Number: US-BAYER-2016-210801

PATIENT
  Sex: Female

DRUGS (1)
  1. MIRALAX [Suspect]
     Active Substance: POLYETHYLENE GLYCOL 3350
     Indication: GASTROINTESTINAL DISORDER
     Dosage: 1 DF, QD
     Route: 048
     Dates: end: 2016

REACTIONS (13)
  - Loss of consciousness [Unknown]
  - Constipation [Unknown]
  - Colon injury [Unknown]
  - Abnormal faeces [Unknown]
  - Drug dependence [Unknown]
  - Feeling abnormal [Unknown]
  - Anger [Unknown]
  - Irritability [Unknown]
  - Palpitations [Unknown]
  - Weight decreased [Unknown]
  - Malaise [Unknown]
  - Product use issue [Unknown]
  - Nervous system disorder [Unknown]
